FAERS Safety Report 7645419-0 (Version None)
Quarter: 2011Q3

REPORT INFORMATION
  Report Type: 
  Country: None (occurrence: None)
  Receive Date: 20110729
  Receipt Date: 20110719
  Transmission Date: 20111222
  Serious: Yes (Hospitalization)
  Sender: FDA-Public Use
  Company Number: FR-B.I. PHARMACEUTICALS,INC./RIDGEFIELD-2011-FF-00695FF

PATIENT
  Sex: Male

DRUGS (8)
  1. ATORVASTATIN CALCIUM [Concomitant]
     Indication: ISCHAEMIC CARDIOMYOPATHY
     Dosage: 80 MG
  2. ASPIRIN [Concomitant]
     Indication: ISCHAEMIC CARDIOMYOPATHY
     Dosage: 160 MG
  3. GLUCOPHAGE [Suspect]
     Dosage: 2550 MG
     Route: 048
  4. DIAMICRON [Suspect]
     Route: 048
     Dates: end: 20110101
  5. TAMSULOSIN HCL [Suspect]
     Dosage: 0.4 MG
     Route: 048
  6. RISPERDAL CONSTA [Suspect]
     Route: 030
     Dates: end: 20110301
  7. ABILIFY [Concomitant]
     Dosage: 10 MG
     Route: 048
     Dates: start: 20110301
  8. ATENOLOL SANDOZ [Concomitant]
     Indication: ISCHAEMIC CARDIOMYOPATHY
     Dosage: 100 MG

REACTIONS (2)
  - RETROPERITONEAL FIBROSIS [None]
  - DYSPNOEA [None]
